FAERS Safety Report 5484836-4 (Version None)
Quarter: 2007Q4

REPORT INFORMATION
  Report Type: 
  Country: None (occurrence: None)
  Receive Date: 20071010
  Receipt Date: 20070927
  Transmission Date: 20080405
  Serious: Yes (Other)
  Sender: FDA-Public Use
  Company Number: 2007S1000249

PATIENT
  Age: 53 Year
  Sex: Male
  Weight: 85.0041 kg

DRUGS (1)
  1. ACITRETIN [Suspect]
     Indication: PSORIASIS
     Dosage: 25 MG; PO
     Route: 048
     Dates: start: 20070314, end: 20070821

REACTIONS (2)
  - ANXIETY [None]
  - PANIC ATTACK [None]
